FAERS Safety Report 15215559 (Version 2)
Quarter: 2018Q3

REPORT INFORMATION
  Report Type: Spontaneous
  Country: US (occurrence: US)
  Receive Date: 20180730
  Receipt Date: 20180809
  Transmission Date: 20181010
  Serious: Yes (Hospitalization)
  Sender: FDA-Public Use
  Company Number: US-VERTEX PHARMACEUTICALS-2018-005172

PATIENT
  Age: 35 Year
  Sex: Female

DRUGS (4)
  1. SERTRALINE [Concomitant]
     Active Substance: SERTRALINE HYDROCHLORIDE
  2. COMPLETE MULTI VIT [Concomitant]
     Active Substance: VITAMINS
  3. LINZESS [Concomitant]
     Active Substance: LINACLOTIDE
  4. SYMDEKO [Suspect]
     Active Substance: IVACAFTOR\TEZACAFTOR
     Indication: CYSTIC FIBROSIS
     Dosage: 100MG TEZACAFTOR/150MG IVACAFTOR AM; 150MG IVACAFTOR PM
     Route: 048
     Dates: start: 20180529

REACTIONS (1)
  - Staphylococcal bacteraemia [Not Recovered/Not Resolved]

NARRATIVE: CASE EVENT DATE: 201807
